FAERS Safety Report 13619842 (Version 1)
Quarter: 2017Q2

REPORT INFORMATION
  Report Type: Spontaneous
  Country: US (occurrence: US)
  Receive Date: 20170606
  Receipt Date: 20170606
  Transmission Date: 20170830
  Serious: Yes (Other)
  Sender: FDA-Public Use
  Company Number: US-TEVA-775094USA

PATIENT
  Age: 39 Year
  Sex: Female

DRUGS (3)
  1. TOPIRAMATE. [Suspect]
     Active Substance: TOPIRAMATE
     Indication: MIGRAINE PROPHYLAXIS
     Dosage: 50 MG DAILY
     Route: 065
  2. MECLIZINE [Suspect]
     Active Substance: MECLIZINE HYDROCHLORIDE
     Indication: VOMITING
     Dosage: 25 MG DAILY AS NEEDED
     Route: 065
  3. CALCIUM CARBONATE. [Suspect]
     Active Substance: CALCIUM CARBONATE
     Dosage: 1000 MG DAILY
     Route: 048

REACTIONS (10)
  - Memory impairment [Unknown]
  - Decreased appetite [Unknown]
  - Weight decreased [Unknown]
  - Paraesthesia [Unknown]
  - Disturbance in attention [Unknown]
  - Urine analysis abnormal [Unknown]
  - Sialoadenitis [Recovered/Resolved]
  - Gastrooesophageal reflux disease [Unknown]
  - Salivary gland calculus [Recovered/Resolved]
  - Dysgeusia [Unknown]
